FAERS Safety Report 8369103-3 (Version None)
Quarter: 2012Q2

REPORT INFORMATION
  Report Type: 
  Country: None (occurrence: None)
  Receive Date: 20120516
  Receipt Date: 20120516
  Transmission Date: 20120825
  Serious: No
  Sender: FDA-Public Use
  Company Number: None

PATIENT
  Age: 13 Month
  Sex: Male
  Weight: 9.9791 kg

DRUGS (2)
  1. SINGULAIR [Suspect]
     Indication: PROPHYLAXIS
     Dosage: 4MG DAILY PO
     Route: 048
     Dates: start: 20120402, end: 20120514
  2. SINGULAIR [Suspect]
     Indication: WHEEZING
     Dosage: 4MG DAILY PO
     Route: 048
     Dates: start: 20120402, end: 20120514

REACTIONS (6)
  - ABNORMAL BEHAVIOUR [None]
  - DIET REFUSAL [None]
  - ANGER [None]
  - MOOD ALTERED [None]
  - AGGRESSION [None]
  - SLEEP DISORDER [None]
